FAERS Safety Report 9539259 (Version 1)
Quarter: 2013Q3

REPORT INFORMATION
  Report Type: Spontaneous
  Country: CH (occurrence: CH)
  Receive Date: 20130920
  Receipt Date: 20130920
  Transmission Date: 20140515
  Serious: Yes (Hospitalization, Other)
  Sender: FDA-Public Use
  Company Number: CH-PFIZER INC-2013268172

PATIENT
  Age: 83 Year
  Sex: Male

DRUGS (10)
  1. ALDACTONE [Suspect]
     Indication: MYOCARDIAL INFARCTION
     Dosage: 25 MG, 1X/DAY
     Route: 048
     Dates: end: 20130829
  2. TRIATEC [Interacting]
     Indication: MYOCARDIAL INFARCTION
     Dosage: 1.25 MG, 1X/DAY
     Route: 048
     Dates: end: 20130829
  3. SINTROM [Concomitant]
     Dosage: UNK
     Route: 048
  4. TOREM [Concomitant]
     Dosage: 5 MG, 1X/DAY
     Route: 048
  5. DIGOXIN [Concomitant]
     Dosage: 0.125 MG, 1X/DAY
     Route: 048
     Dates: end: 201308
  6. BELOC [Concomitant]
     Dosage: 50 MG, 1X/DAY
     Route: 048
     Dates: end: 201308
  7. METFIN [Concomitant]
     Dosage: 500 MG, 1X/DAY
     Route: 048
     Dates: end: 201308
  8. REMERON [Concomitant]
     Dosage: 30 MG, 1X/DAY
     Route: 048
  9. TRANSIPEG [Concomitant]
     Dosage: 1 DF, 1X/DAY
     Route: 048
  10. ISOKET [Concomitant]
     Dosage: 1 DF, 1X/DAY IF NEEDED
     Route: 002

REACTIONS (4)
  - Hyperkalaemia [Recovered/Resolved]
  - Acute myocardial infarction [Unknown]
  - Hyperglycaemia [Unknown]
  - Drug interaction [Unknown]
